FAERS Safety Report 10937107 (Version 2)
Quarter: 2015Q2

REPORT INFORMATION
  Report Type: Spontaneous
  Country: US (occurrence: US)
  Receive Date: 20150321
  Receipt Date: 20150525
  Transmission Date: 20150821
  Serious: Yes (Hospitalization)
  Sender: FDA-Public Use
  Company Number: US-JNJFOC-20140518668

PATIENT
  Age: 45 Year
  Sex: Female
  Weight: 67.13 kg

DRUGS (3)
  1. TOPAMAX [Suspect]
     Active Substance: TOPIRAMATE
     Indication: EPILEPSY
     Route: 048
  2. LAMOTRIGINE. [Suspect]
     Active Substance: LAMOTRIGINE
     Indication: PRODUCT USED FOR UNKNOWN INDICATION
     Route: 065
     Dates: end: 2013
  3. TOPAMAX [Suspect]
     Active Substance: TOPIRAMATE
     Indication: EPILEPSY
     Route: 048
     Dates: start: 2013

REACTIONS (5)
  - Visual impairment [Not Recovered/Not Resolved]
  - Product colour issue [Unknown]
  - Memory impairment [Not Recovered/Not Resolved]
  - Seizure [Unknown]
  - Adverse event [Unknown]

NARRATIVE: CASE EVENT DATE: 201405
